FAERS Safety Report 7818044-6 (Version None)
Quarter: 2011Q4

REPORT INFORMATION
  Report Type: 
  Country: None (occurrence: None)
  Receive Date: 20111017
  Receipt Date: 20111007
  Transmission Date: 20120403
  Serious: Yes (Other)
  Sender: FDA-Public Use
  Company Number: KR-SANOFI-AVENTIS-2011SA060896

PATIENT
  Age: 32 Year
  Sex: Female
  Weight: 81 kg

DRUGS (4)
  1. LANTUS [Suspect]
     Indication: DIABETES MELLITUS
     Dosage: DOSE:10 UNIT(S)
     Route: 058
     Dates: start: 20110725, end: 20110901
  2. APIDRA [Suspect]
     Indication: DIABETES MELLITUS
     Dosage: DOSE:6 UNIT(S)
     Route: 058
     Dates: start: 20110831, end: 20110901
  3. APIDRA [Suspect]
     Dosage: DOSE: 6-8-8 UNIT
     Route: 058
     Dates: start: 20110901
  4. LANTUS [Suspect]
     Dosage: DOSE:12 UNIT(S)
     Route: 058
     Dates: start: 20110901

REACTIONS (1)
  - ABORTION SPONTANEOUS [None]
